FAERS Safety Report 4502510-5 (Version None)
Quarter: 2004Q4

REPORT INFORMATION
  Report Type: 
  Country: None (occurrence: None)
  Receive Date: 20041112
  Receipt Date: 20041105
  Transmission Date: 20050328
  Serious: Yes (Other)
  Sender: FDA-Public Use
  Company Number: HQWYE268505NOV04

PATIENT
  Age: 75 Year
  Sex: Male

DRUGS (2)
  1. CORDAREX (AMIODARONE, INJECTION) [Suspect]
     Dosage: 900 MG 1X PER 1 DAY INTRAVENOUS
     Route: 042
     Dates: start: 20041024, end: 20041025
  2. CORDAREX (AMIODARONE, INJECTION) [Suspect]
     Dosage: 450 MG 1X PER 1 DAY INTRAVENOUS
     Route: 042
     Dates: start: 20041026

REACTIONS (3)
  - ALANINE AMINOTRANSFERASE INCREASED [None]
  - ASPARTATE AMINOTRANSFERASE INCREASED [None]
  - BLOOD LACTATE DEHYDROGENASE INCREASED [None]
